FAERS Safety Report 20797616 (Version 1)
Quarter: 2022Q2

REPORT INFORMATION
  Report Type: Spontaneous
  Country: US (occurrence: None)
  Receive Date: 20220505
  Receipt Date: 20220505
  Transmission Date: 20220720
  Serious: No
  Sender: FDA-Public Use
  Company Number: None

PATIENT
  Age: 46 Year
  Sex: Female
  Weight: 83.91 kg

DRUGS (2)
  1. AZELASTINE [Suspect]
     Active Substance: AZELASTINE
     Indication: Rhinitis allergic
     Dosage: OTHER QUANTITY : 1-2 SPRAYS;?FREQUENCY : TWICE A DAY;?
     Route: 045
     Dates: start: 202010, end: 202011
  2. FLUTICASONE PROPIONATE [Suspect]
     Active Substance: FLUTICASONE PROPIONATE
     Indication: Rhinitis allergic
     Dosage: OTHER QUANTITY : 2 SPRAYS;?FREQUENCY : DAILY;?
     Route: 045
     Dates: start: 202010, end: 202011

REACTIONS (1)
  - Treatment failure [None]
